FAERS Safety Report 12295231 (Version 1)
Quarter: 2016Q2

REPORT INFORMATION
  Report Type: Spontaneous
  Country: US (occurrence: US)
  Receive Date: 20160422
  Receipt Date: 20160422
  Transmission Date: 20160815
  Serious: No
  Sender: FDA-Public Use
  Company Number: US-GLAXOSMITHKLINE-US2016GSK047404

PATIENT
  Sex: Female
  Weight: 65 kg

DRUGS (1)
  1. CEFTIN [Suspect]
     Active Substance: CEFUROXIME AXETIL
     Indication: SINUS CONGESTION
     Dosage: 250 MG, BID
     Dates: start: 2015

REACTIONS (1)
  - Drug ineffective [Unknown]
